FAERS Safety Report 8267187-4 (Version None)
Quarter: 2012Q2

REPORT INFORMATION
  Report Type: 
  Country: None (occurrence: None)
  Receive Date: 20120409
  Receipt Date: 20120403
  Transmission Date: 20120825
  Serious: Yes (Hospitalization)
  Sender: FDA-Public Use
  Company Number: BR-PFIZER INC-2012085055

PATIENT
  Age: 68 Year
  Sex: Female
  Weight: 59 kg

DRUGS (2)
  1. SUTENT [Suspect]
     Indication: RENAL CANCER
     Dosage: 50 MG, 1X/DAY
     Route: 048
     Dates: start: 20120101
  2. CAPTOPRIL [Concomitant]
     Dosage: 25 MG, 2X/DAY
     Route: 048

REACTIONS (13)
  - MOUTH INJURY [None]
  - LIMB INJURY [None]
  - FACE INJURY [None]
  - LIVER INJURY [None]
  - ANAL INJURY [None]
  - BLOOD PRESSURE INCREASED [None]
  - DIARRHOEA [None]
  - WOUND [None]
  - THROAT LESION [None]
  - CARDIOMEGALY [None]
  - VULVOVAGINAL INJURY [None]
  - HAEMORRHAGE [None]
  - EOSINOPHIL COUNT INCREASED [None]
